FAERS Safety Report 16122923 (Version 1)
Quarter: 2019Q1

REPORT INFORMATION
  Report Type: Report from Study
  Country: CA (occurrence: CA)
  Receive Date: 20190327
  Receipt Date: 20190327
  Transmission Date: 20190418
  Serious: Yes (Other)
  Sender: FDA-Public Use
  Company Number: CA-PFIZER INC-2019125795

PATIENT

DRUGS (3)
  1. VINCRISTINE SULFATE. [Suspect]
     Active Substance: VINCRISTINE SULFATE
     Indication: MALIGNANT GLIOMA
     Dosage: UNK, CYCLIC
  2. LOMUSTINE. [Suspect]
     Active Substance: LOMUSTINE
     Indication: MALIGNANT GLIOMA
     Dosage: UNK, CYCLIC
  3. PROCARBAZINE [Suspect]
     Active Substance: PROCARBAZINE
     Indication: MALIGNANT GLIOMA
     Dosage: UNK, CYCLIC

REACTIONS (1)
  - Tumour pseudoprogression [Unknown]
